FAERS Safety Report 10098481 (Version 1)
Quarter: 2014Q2

REPORT INFORMATION
  Report Type: Spontaneous
  Country: US (occurrence: US)
  Receive Date: 20140423
  Receipt Date: 20140423
  Transmission Date: 20141212
  Serious: No
  Sender: FDA-Public Use
  Company Number: US-PFIZER INC-2014110407

PATIENT
  Age: 47 Year
  Sex: Female
  Weight: 103.4 kg

DRUGS (13)
  1. PREMARIN [Suspect]
     Indication: HORMONE REPLACEMENT THERAPY
     Dosage: 0.9 MG, 1X/DAY
     Dates: start: 201311, end: 201311
  2. ASPIRIN [Concomitant]
     Dosage: UNK
  3. HYDROCODONE W/ACETAMINOPHEN [Concomitant]
     Indication: BACK PAIN
     Dosage: 7.5\325 MG, UNK
  4. HYDROCODONE W/ACETAMINOPHEN [Concomitant]
     Indication: NERVE INJURY
  5. ARMOUR THYROID [Concomitant]
     Indication: THYROID DISORDER
     Dosage: 60 MG, 1X/DAY
  6. ESTROVEN MAX STRENGTH [Concomitant]
     Dosage: UNK
  7. XANAX [Concomitant]
     Indication: STRESS
     Dosage: 0.5 MG, 4X/DAY
  8. XANAX [Concomitant]
     Indication: ANXIETY
  9. FLEXERIL [Concomitant]
     Indication: MUSCLE RELAXANT THERAPY
     Dosage: 10 MG, 3X/DAY
  10. FOLIC ACID [Concomitant]
     Dosage: 1 MG, 1X/DAY
  11. CLOVE OIL [Concomitant]
     Dosage: UNK, 1X/DAY
  12. KELP [Concomitant]
     Dosage: 150 UG, 1X/DAY
  13. CHROMIUM/CINNAMON [Concomitant]
     Indication: DIABETES MELLITUS
     Dosage: 1000 MG, 2X/DAY

REACTIONS (1)
  - Weight decreased [Unknown]
